FAERS Safety Report 8314320-1 (Version None)
Quarter: 2012Q1

REPORT INFORMATION
  Report Type: 
  Country: None (occurrence: None)
  Receive Date: 20120315
  Receipt Date: 20110309
  Transmission Date: 20120608
  Serious: Yes (Other)
  Sender: FDA-Public Use
  Company Number: PHHY2011US18821

PATIENT
  Age: 33 Year
  Sex: Female

DRUGS (7)
  1. VITAMIN B12 [Concomitant]
  2. VITAMIN B6 [Concomitant]
  3. GILENYA [Suspect]
     Indication: MULTIPLE SCLEROSIS
     Dosage: 0.5 MG, QD, ORAL
     Route: 048
     Dates: start: 20110301, end: 20110305
  4. SOLU-MEDROL [Concomitant]
  5. B COMPLEX (NICOTINAMIDE, PYRIDOXINE HYDROCHLORIDE, RIBOFLAVIN, THIAMIN [Concomitant]
  6. IBUPROFEN (ADVIL) [Concomitant]
  7. MULTIVITAMIN [Concomitant]

REACTIONS (7)
  - FATIGUE [None]
  - DIZZINESS [None]
  - BLOOD PRESSURE DECREASED [None]
  - HEART RATE DECREASED [None]
  - SLUGGISHNESS [None]
  - HYPOAESTHESIA [None]
  - HEADACHE [None]
